FAERS Safety Report 6725519 (Version 1)
Quarter: 2020Q3

REPORT INFORMATION
  Report Type: Report from Study
  Country: US (occurrence: US)
  Receive Date: 20080813
  Receipt Date: 20080813
  Transmission Date: 20201104
  Serious: Yes (Other)
  Sender: FDA-Public Use
  Company Number: US-ROCHE-579674

PATIENT
  Age: 55 Year
  Sex: Female

DRUGS (6)
  1. INSULIN NOS [Concomitant]
     Active Substance: INSULIN NOS
     Dosage: FORM: PUMP
  2. ACCUPRIL [Concomitant]
     Active Substance: QUINAPRIL HYDROCHLORIDE
  3. ZOCOR [Concomitant]
     Active Substance: SIMVASTATIN
  4. PROVIGIL [Concomitant]
     Active Substance: MODAFINIL
  5. LEXAPRO [Concomitant]
     Active Substance: ESCITALOPRAM OXALATE
  6. IBANDRONIC ACID. [Suspect]
     Active Substance: IBANDRONIC ACID
     Indication: OSTEOPENIA
     Route: 065
     Dates: start: 20080805

REACTIONS (1)
  - Blood glucose decreased [Unknown]

NARRATIVE: CASE EVENT DATE: 20080805
